FAERS Safety Report 18187407 (Version 1)
Quarter: 2020Q3

REPORT INFORMATION
  Report Type: Report from Study
  Country: US (occurrence: US)
  Receive Date: 20200824
  Receipt Date: 20200824
  Transmission Date: 20201103
  Serious: Yes (Other)
  Sender: FDA-Public Use
  Company Number: US-BAYER-2020-171500

PATIENT
  Age: 69 Year
  Sex: Male
  Weight: 68.48 kg

DRUGS (6)
  1. VITAMIN D3 [Concomitant]
     Active Substance: CHOLECALCIFEROL
  2. STIVARGA [Suspect]
     Active Substance: REGORAFENIB
     Indication: RECTAL CANCER
     Dosage: 160MG DAILY
     Dates: start: 20200811
  3. XELODA [Concomitant]
     Active Substance: CAPECITABINE
  4. STIVARGA [Suspect]
     Active Substance: REGORAFENIB
     Indication: RECTAL CANCER
     Dosage: 80 MG DAILY
     Dates: start: 20200728, end: 20200803
  5. STIVARGA [Suspect]
     Active Substance: REGORAFENIB
     Indication: METASTASES TO LIVER
     Dosage: 120 MG DAILY
     Dates: start: 20200804, end: 20200810
  6. TYLENOL [Concomitant]
     Active Substance: ACETAMINOPHEN

REACTIONS (2)
  - Eye operation [Unknown]
  - Off label use [None]

NARRATIVE: CASE EVENT DATE: 20200728
